FAERS Safety Report 7332204-2 (Version None)
Quarter: 2011Q1

REPORT INFORMATION
  Report Type: 
  Country: None (occurrence: None)
  Receive Date: 20110304
  Receipt Date: 20110228
  Transmission Date: 20110831
  Serious: Yes (Other)
  Sender: FDA-Public Use
  Company Number: US-PFIZER INC-2007002265

PATIENT
  Sex: Female

DRUGS (1)
  1. NEURONTIN [Suspect]
     Indication: DEPRESSION
     Dosage: 200MG, 300MG, 400MG
     Dates: start: 20020601, end: 20040201

REACTIONS (5)
  - FALL [None]
  - CONTUSION [None]
  - PAIN [None]
  - BALANCE DISORDER [None]
  - ANXIETY [None]
